FAERS Safety Report 20053101 (Version 1)
Quarter: 2021Q4

REPORT INFORMATION
  Report Type: Spontaneous
  Country: US (occurrence: US)
  Receive Date: 20211110
  Receipt Date: 20211110
  Transmission Date: 20220303
  Serious: Yes (Hospitalization, Other)
  Sender: FDA-Public Use
  Company Number: US-BRISTOL-MYERS SQUIBB COMPANY-BMS-2021-116663

PATIENT
  Age: 65 Year
  Sex: Male
  Weight: 99.79 kg

DRUGS (2)
  1. ELIQUIS [Suspect]
     Active Substance: APIXABAN
     Indication: Deep vein thrombosis
     Dosage: 5 MILLIGRAM, BID
     Route: 048
     Dates: start: 2016
  2. ELIQUIS [Suspect]
     Active Substance: APIXABAN
     Dosage: 5 MG ONLY TAKES ONE WHEN OXYGEN LEVEL IS LOW
     Route: 048

REACTIONS (5)
  - Oxygen saturation decreased [Unknown]
  - Thrombosis [Unknown]
  - Contusion [Unknown]
  - Skin discolouration [Unknown]
  - Intentional product misuse [Unknown]
